FAERS Safety Report 4343521-2 (Version None)
Quarter: 2004Q2

REPORT INFORMATION
  Report Type: 
  Country: None (occurrence: None)
  Receive Date: 20040419
  Receipt Date: 20040405
  Transmission Date: 20050107
  Serious: Yes (Other)
  Sender: FDA-Public Use
  Company Number: HQWYE368806APR04

PATIENT
  Age: 34 Year
  Sex: Female
  Weight: 72.64 kg

DRUGS (2)
  1. NORPLANT SYSTEM [Suspect]
     Indication: CONTRACEPTION
     Dosage: 6 CAPSULES, SUBCUTANEOUS
     Route: 058
     Dates: start: 19930101, end: 19980101
  2. NORPLANT SYSTEM [Suspect]
     Indication: CONTRACEPTION
     Dosage: 6 CAPSULES, SUBCUTANEOUS
     Route: 058
     Dates: start: 19880101, end: 20030220

REACTIONS (6)
  - APPLICATION SITE ANAESTHESIA [None]
  - APPLICATION SITE PAIN [None]
  - COMPLICATION OF DEVICE REMOVAL [None]
  - HYPOAESTHESIA [None]
  - NERVE INJURY [None]
  - PAIN IN EXTREMITY [None]
